FAERS Safety Report 6314419-5 (Version None)
Quarter: 2009Q3

REPORT INFORMATION
  Report Type: 
  Country: None (occurrence: None)
  Receive Date: 20090819
  Receipt Date: 20090810
  Transmission Date: 20100115
  Serious: Yes (Other)
  Sender: FDA-Public Use
  Company Number: US-ROCHE-649333

PATIENT
  Age: 77 Year
  Sex: Female

DRUGS (8)
  1. BONIVA [Suspect]
     Indication: OSTEOPOROSIS
     Route: 048
     Dates: start: 20070101
  2. AMBIEN [Concomitant]
  3. OMEGA [Concomitant]
     Dosage: DRUG: OMEGA 3
  4. CALCIUM [Concomitant]
  5. AROMASIN [Concomitant]
  6. COUMADIN [Concomitant]
  7. NORVASC [Concomitant]
  8. LANOXIN [Concomitant]

REACTIONS (2)
  - BREAST CANCER RECURRENT [None]
  - TOOTH DISORDER [None]
